FAERS Safety Report 15867408 (Version 12)
Quarter: 2019Q3

REPORT INFORMATION
  Report Type: Report from Study
  Country: IL (occurrence: IL)
  Receive Date: 20190125
  Receipt Date: 20190813
  Transmission Date: 20191004
  Serious: Yes (Hospitalization)
  Sender: FDA-Public Use
  Company Number: IL-IPSEN BIOPHARMACEUTICALS, INC.-2019-01238

PATIENT
  Age: 65 Year
  Sex: Female

DRUGS (8)
  1. SUTENT [Suspect]
     Active Substance: SUNITINIB MALATE
  2. INSULIN [Concomitant]
     Active Substance: INSULIN NOS
     Indication: TYPE 2 DIABETES MELLITUS
  3. LOSEC [Concomitant]
     Active Substance: OMEPRAZOLE
  4. TAXOL [Concomitant]
     Active Substance: PACLITAXEL
  5. SOMATULINE AUTOGEL 120MG [Suspect]
     Active Substance: LANREOTIDE ACETATE
     Indication: PANCREATIC NEUROENDOCRINE TUMOUR
     Dates: start: 20131118
  6. CREON [Concomitant]
     Active Substance: PANCRELIPASE AMYLASE\PANCRELIPASE LIPASE\PANCRELIPASE PROTEASE
  7. CHOLECALCIFEROL [Concomitant]
     Active Substance: CHOLECALCIFEROL
     Route: 042
  8. SUTENT [Suspect]
     Active Substance: SUNITINIB MALATE
     Indication: PANCREATIC NEUROENDOCRINE TUMOUR
     Dates: start: 200405

REACTIONS (9)
  - Off label use [Unknown]
  - Disease progression [Not Recovered/Not Resolved]
  - Liver abscess [Recovered/Resolved]
  - Product dose omission [Unknown]
  - Cholangitis [Recovered/Resolved]
  - Off label use [Unknown]
  - Neutropenia [Unknown]
  - Oesophageal squamous cell carcinoma [Unknown]
  - Joint effusion [Unknown]

NARRATIVE: CASE EVENT DATE: 201606
